FAERS Safety Report 5464781-0 (Version None)
Quarter: 2007Q3

REPORT INFORMATION
  Report Type: 
  Country: None (occurrence: None)
  Receive Date: 20070921
  Receipt Date: 20070913
  Transmission Date: 20080115
  Serious: Yes (Death, Hospitalization)
  Sender: FDA-Public Use
  Company Number: JP-PFIZER INC-2007071746

PATIENT
  Sex: Female
  Weight: 66 kg

DRUGS (5)
  1. HYSRON-H200 [Suspect]
     Dosage: DAILY DOSE:800MG-FREQ:DAILY
     Route: 048
     Dates: start: 20041203, end: 20070807
  2. ADRIAMYCIN PFS [Suspect]
     Indication: BREAST CANCER
     Route: 042
     Dates: start: 20020426, end: 20020705
  3. VINORELBINE [Suspect]
     Indication: BREAST CANCER RECURRENT
     Dosage: DAILY DOSE:25MG/M*2
     Route: 042
  4. LOXONIN [Concomitant]
     Dosage: DAILY DOSE:30MG
     Route: 048
  5. OXYCONTIN [Concomitant]
     Route: 048

REACTIONS (8)
  - ASPARTATE AMINOTRANSFERASE INCREASED [None]
  - BLOOD CREATININE INCREASED [None]
  - BLOOD LACTATE DEHYDROGENASE INCREASED [None]
  - CARDIAC FAILURE ACUTE [None]
  - LEUKOPENIA [None]
  - NEUTROPHIL COUNT DECREASED [None]
  - PAIN IN EXTREMITY [None]
  - PROTEIN TOTAL DECREASED [None]
